FAERS Safety Report 21504161 (Version 1)
Quarter: 2022Q4

REPORT INFORMATION
  Report Type: Spontaneous
  Country: FR (occurrence: FR)
  Receive Date: 20221025
  Receipt Date: 20221025
  Transmission Date: 20230113
  Serious: Yes (Life-Threatening, Hospitalization)
  Sender: FDA-Public Use
  Company Number: None

PATIENT
  Age: 49 Year
  Sex: Male

DRUGS (11)
  1. ATRACURIUM BESYLATE [Suspect]
     Active Substance: ATRACURIUM BESYLATE
     Dosage: UNK
     Route: 042
     Dates: start: 20160125, end: 20160125
  2. PROPOFOL [Suspect]
     Active Substance: PROPOFOL
     Dosage: 180 MG
     Route: 042
     Dates: start: 20160125, end: 20160125
  3. DROPERIDOL [Suspect]
     Active Substance: DROPERIDOL
     Dosage: UNK
     Route: 042
     Dates: start: 20160125, end: 20160125
  4. KETAMINE [Suspect]
     Active Substance: KETAMINE
     Dosage: 20 MG
     Route: 042
     Dates: start: 20160125, end: 20160125
  5. KETOPROFEN [Suspect]
     Active Substance: KETOPROFEN
     Dosage: UNK
     Route: 042
     Dates: start: 20160125, end: 20160125
  6. SUFENTANIL [Suspect]
     Active Substance: SUFENTANIL
     Dosage: 20 MG
     Route: 042
     Dates: start: 20160125, end: 20160125
  7. ACUPAN [Suspect]
     Active Substance: NEFOPAM HYDROCHLORIDE
     Dosage: 20 MG
     Route: 042
     Dates: start: 20160125, end: 20160125
  8. BUPRENORPHINE HYDROCHLORIDE [Suspect]
     Active Substance: BUPRENORPHINE HYDROCHLORIDE
     Dosage: UNK
     Route: 042
     Dates: start: 20160125, end: 20160125
  9. CLONIDINE HYDROCHLORIDE [Suspect]
     Active Substance: CLONIDINE HYDROCHLORIDE
     Dosage: 1 DF
     Route: 042
     Dates: start: 20160125, end: 20160125
  10. MIDAZOLAM [Suspect]
     Active Substance: MIDAZOLAM
     Dosage: 2 MG
     Route: 042
     Dates: start: 20160125, end: 20160125
  11. ROPIVACAINE HYDROCHLORIDE [Suspect]
     Active Substance: ROPIVACAINE HYDROCHLORIDE
     Dosage: UNK
     Route: 042
     Dates: start: 20160125, end: 20160125

REACTIONS (4)
  - Respiratory symptom [Recovered/Resolved with Sequelae]
  - Bradycardia [Recovered/Resolved with Sequelae]
  - Malaise [Recovered/Resolved with Sequelae]
  - Respiratory arrest [Recovered/Resolved with Sequelae]

NARRATIVE: CASE EVENT DATE: 20160125
